FAERS Safety Report 9374692 (Version 1)
Quarter: 2013Q2

REPORT INFORMATION
  Report Type: Spontaneous
  Country: US (occurrence: None)
  Receive Date: 20130628
  Receipt Date: 20130628
  Transmission Date: 20140414
  Serious: Yes (Other)
  Sender: FDA-Public Use
  Company Number: None

PATIENT
  Age: 53 Year
  Sex: Male
  Weight: 104.33 kg

DRUGS (2)
  1. BUPIVACAINE [Suspect]
     Indication: LOCAL ANAESTHESIA
     Dates: start: 20120412, end: 20120412
  2. BUPIVACAINE [Suspect]
     Indication: KNEE OPERATION
     Dates: start: 20120412, end: 20120412

REACTIONS (11)
  - Swelling [None]
  - Skin discolouration [None]
  - Dizziness [None]
  - Fatigue [None]
  - Sinus headache [None]
  - Fungal infection [None]
  - Visual acuity reduced [None]
  - Drug effect decreased [None]
  - Sinus congestion [None]
  - Product quality issue [None]
  - Suspected transmission of an infectious agent via product [None]
